FAERS Safety Report 7207288-2 (Version None)
Quarter: 2011Q1

REPORT INFORMATION
  Report Type: 
  Country: None (occurrence: None)
  Receive Date: 20110103
  Receipt Date: 20101221
  Transmission Date: 20110831
  Serious: Yes (Hospitalization)
  Sender: FDA-Public Use
  Company Number: JP-AMGEN-JPNSP2010002893

PATIENT

DRUGS (8)
  1. TEPRENONE [Concomitant]
     Indication: GASTRITIS PROPHYLAXIS
     Dosage: 50 MG, UNK
     Route: 048
     Dates: end: 20101027
  2. ENBREL [Suspect]
     Indication: RHEUMATOID ARTHRITIS
     Dosage: 25 MG, QWK
     Route: 058
     Dates: start: 20100924, end: 20101013
  3. LOXONIN                            /00890702/ [Concomitant]
     Indication: RHEUMATOID ARTHRITIS
     Dosage: 60 MG, QD
     Route: 048
     Dates: end: 20101027
  4. ENBREL [Suspect]
     Dosage: 50 MG, QWK
     Route: 058
     Dates: start: 20101020, end: 20101027
  5. BAKTAR [Suspect]
     Indication: PNEUMOCYSTIS JIROVECI PNEUMONIA
     Dosage: UNKNOWN
     Route: 048
     Dates: start: 20100929, end: 20101027
  6. PREDNISOLONE [Concomitant]
     Dosage: 4 MG, QD
     Dates: start: 20101014, end: 20101027
  7. PREDNISOLONE [Concomitant]
     Dosage: 3 MG, QD
     Dates: start: 20101028, end: 20101029
  8. PREDNISOLONE [Concomitant]
     Indication: RHEUMATOID ARTHRITIS
     Dosage: 6 MG, UNK
     Route: 048
     Dates: start: 20100929, end: 20101013

REACTIONS (7)
  - SHOCK [None]
  - PYREXIA [None]
  - AGRANULOCYTOSIS [None]
  - PURPURA [None]
  - RENAL FAILURE [None]
  - SEPSIS [None]
  - VASCULITIS [None]
